FAERS Safety Report 17774400 (Version 1)
Quarter: 2020Q2

REPORT INFORMATION
  Report Type: Report from Study
  Country: ES (occurrence: ES)
  Receive Date: 20200513
  Receipt Date: 20200513
  Transmission Date: 20200714
  Serious: Yes (Hospitalization)
  Sender: FDA-Public Use
  Company Number: ES-TEVA-2020-ES-1233503

PATIENT
  Age: 50 Year
  Sex: Male

DRUGS (2)
  1. IBUPROFENO (1769A) [Suspect]
     Active Substance: IBUPROFEN
     Dosage: 2 DOSAGE FORMS
     Route: 048
     Dates: start: 20170721, end: 20170721
  2. NATECAL D COMPRIMIDOS MASTICABLES, 60 COMPRIMIDOS [Concomitant]
     Dosage: 1 DOSAGE FORM
     Route: 048
     Dates: start: 201602, end: 20170728

REACTIONS (1)
  - Upper gastrointestinal haemorrhage [Recovered/Resolved]

NARRATIVE: CASE EVENT DATE: 20170725
